FAERS Safety Report 26042620 (Version 1)
Quarter: 2025Q4

REPORT INFORMATION
  Report Type: Report from Study
  Country: US (occurrence: US)
  Receive Date: 20251113
  Receipt Date: 20251113
  Transmission Date: 20260117
  Serious: Yes (Other)
  Sender: MALLINCKRODT
  Company Number: US-MALLINCKRODT-MNK202500993

PATIENT
  Age: 66 Year
  Sex: Female

DRUGS (5)
  1. CORTICOTROPIN [Suspect]
     Active Substance: CORTICOTROPIN
     Indication: Systemic lupus erythematosus
     Dates: start: 20190108
  2. CORTICOTROPIN [Suspect]
     Active Substance: CORTICOTROPIN
     Indication: Systemic lupus erythematosus
     Dosage: UNKNOWN (INCREASED LITTLE MORE)
  3. CORTICOTROPIN [Suspect]
     Active Substance: CORTICOTROPIN
  4. SPIRONOLACTONE [Concomitant]
     Active Substance: SPIRONOLACTONE
     Indication: Fluid retention
     Dosage: UNKNOWN
  5. SPIRONOLACTONE [Concomitant]
     Active Substance: SPIRONOLACTONE
     Dates: start: 2025

REACTIONS (6)
  - Lupus nephritis [Unknown]
  - Disease progression [Unknown]
  - Squamous cell carcinoma [Unknown]
  - Dehydration [Unknown]
  - Skin lesion [Unknown]
  - Joint swelling [Unknown]

NARRATIVE: CASE EVENT DATE: 20250201
